FAERS Safety Report 4870953-6 (Version None)
Quarter: 2005Q4

REPORT INFORMATION
  Report Type: 
  Country: None (occurrence: None)
  Receive Date: 20051229
  Receipt Date: 20051212
  Transmission Date: 20060501
  Serious: Yes (Hospitalization)
  Sender: FDA-Public Use
  Company Number: JP_051108063

PATIENT
  Age: 31 Year
  Sex: Male
  Weight: 68 kg

DRUGS (6)
  1. HUMALOG MIX 50/50 [Suspect]
     Indication: DIABETES MELLITUS
     Dosage: 4 U, DAILY (1/D), SUBCUTANEOUS
     Route: 058
     Dates: start: 20050915, end: 20050101
  2. HUMALOG MIX 50/50 [Suspect]
     Indication: DIABETES MELLITUS
     Dosage: 4 U, DAILY (1/D), SUBCUTANEOUS
     Route: 058
     Dates: start: 20050101, end: 20051025
  3. HUMALOG [Suspect]
     Indication: DIABETES MELLITUS
     Dosage: 30 U, DAILY (1/D), SUBCUTANEOUS
     Route: 058
     Dates: start: 20050909, end: 20050101
  4. HUMALOG 50NPL/50L PEN (HUMALOG 50NPL / 50L PEN) [Concomitant]
  5. HUMALOG PEN (HUMALOG PEN) [Concomitant]
  6. METFORMIN HCL [Concomitant]

REACTIONS (12)
  - ALANINE AMINOTRANSFERASE INCREASED [None]
  - ASPARTATE AMINOTRANSFERASE INCREASED [None]
  - BLOOD ALKALINE PHOSPHATASE INCREASED [None]
  - BLOOD BILIRUBIN INCREASED [None]
  - BLOOD CHOLINESTERASE INCREASED [None]
  - BLOOD LACTATE DEHYDROGENASE INCREASED [None]
  - CYTOMEGALOVIRUS ANTIBODY POSITIVE [None]
  - DRUG HYPERSENSITIVITY [None]
  - GAMMA-GLUTAMYLTRANSFERASE INCREASED [None]
  - GLYCOGEN STORAGE DISORDER [None]
  - HEPATITIS B SURFACE ANTIGEN POSITIVE [None]
  - LIVER DISORDER [None]
